FAERS Safety Report 14587317 (Version 1)
Quarter: 2018Q1

REPORT INFORMATION
  Report Type: Spontaneous
  Country: US (occurrence: US)
  Receive Date: 20180301
  Receipt Date: 20180301
  Transmission Date: 20180509
  Serious: Yes (Hospitalization, Other)
  Sender: FDA-Public Use
  Company Number: None

PATIENT
  Age: 36 Year
  Sex: Female

DRUGS (1)
  1. ZOLPIDEM TARTRATE 10MG TEVA PHARMACEUTICALS USA INC [Suspect]
     Active Substance: ZOLPIDEM TARTRATE
     Indication: ANXIETY
     Dosage: 10 MG NIGHTLY ORAL
     Route: 048
     Dates: start: 20110525, end: 20110526

REACTIONS (8)
  - Chest discomfort [None]
  - Thyroid function test abnormal [None]
  - Confusional state [None]
  - Anaphylactic reaction [None]
  - Drug ineffective [None]
  - Asthenia [None]
  - Urinary incontinence [None]
  - Heart rate increased [None]

NARRATIVE: CASE EVENT DATE: 20110925
